FAERS Safety Report 8679474 (Version 4)
Quarter: 2012Q4

REPORT INFORMATION
  Report Type: Report from Study
  Country: NL (occurrence: NL)
  Receive Date: 20120724
  Receipt Date: 20121015
  Transmission Date: 20130627
  Serious: Yes (Hospitalization, Disabling, Other)
  Sender: FDA-Public Use
  Company Number: NL-GENZYME-CLOF-1002218

PATIENT
  Age: 38 None
  Sex: Male
  Weight: 60 kg

DRUGS (4)
  1. EVOLTRA [Suspect]
     Indication: ACUTE MYELOID LEUKAEMIA
     Dosage: 18 mg, qd
     Route: 042
     Dates: start: 20120625, end: 20120629
  2. CYTARABINE [Suspect]
     Indication: ACUTE MYELOID LEUKAEMIA
     Dosage: 3600 mg, qd, days 1-6
     Route: 042
     Dates: start: 20120625, end: 20120630
  3. AMSACRINE [Suspect]
     Indication: ACUTE MYELOID LEUKAEMIA
     Dosage: 220 mg, qd, day 4, 5, 6
     Route: 042
     Dates: start: 20120628, end: 20120630
  4. VALACICLOVIR [Concomitant]
     Indication: PROPHYLAXIS
     Dosage: 500 mg, UNK
     Route: 065
     Dates: start: 20120530

REACTIONS (4)
  - Encephalopathy [Not Recovered/Not Resolved]
  - Transfusion-related acute lung injury [Unknown]
  - Respiratory failure [Recovered/Resolved]
  - Endophthalmitis [Not Recovered/Not Resolved]
